FAERS Safety Report 14566599 (Version 2)
Quarter: 2018Q1

REPORT INFORMATION
  Report Type: Report from Study
  Country: MX (occurrence: MX)
  Receive Date: 20180223
  Receipt Date: 20180312
  Transmission Date: 20180509
  Serious: Yes (Other)
  Sender: FDA-Public Use
  Company Number: PHHY2018MX030043

PATIENT
  Age: 79 Year
  Sex: Male
  Weight: 85 kg

DRUGS (5)
  1. METITAL [Concomitant]
     Indication: SKIN BURNING SENSATION
     Dosage: 1 DF, UNK
     Route: 065
     Dates: start: 20150101
  2. METITAL [Concomitant]
     Indication: POST PROCEDURAL COMPLICATION
  3. DABEX [Concomitant]
     Indication: BLOOD GLUCOSE FLUCTUATION
     Dosage: 1 G, BID (1 G IN THE MORNING AND 1 G IN THE AFTERNOON)
     Route: 048
     Dates: start: 20140101
  4. INSULIN [Concomitant]
     Active Substance: INSULIN NOS
     Indication: DIABETES MELLITUS
     Dosage: 15 U, QD
     Route: 065
     Dates: start: 2016
  5. EXFORGE HCT [Suspect]
     Active Substance: AMLODIPINE BESYLATE\HYDROCHLOROTHIAZIDE\VALSARTAN
     Indication: HYPERTENSION
     Dosage: 1 DF (AMLODIPINE 5 MG, HYDROCHLOROTHIAZIDE 12.5 MG, VALSARTAN 160 MG), Q12H
     Route: 065
     Dates: start: 20160701

REACTIONS (4)
  - Inappropriate schedule of drug administration [Not Recovered/Not Resolved]
  - Testis cancer [Unknown]
  - Skin burning sensation [Unknown]
  - Gait disturbance [Not Recovered/Not Resolved]

NARRATIVE: CASE EVENT DATE: 20150101
